FAERS Safety Report 6037965-0 (Version None)
Quarter: 2009Q1

REPORT INFORMATION
  Report Type: 
  Country: None (occurrence: None)
  Receive Date: 20090114
  Receipt Date: 20090114
  Transmission Date: 20090719
  Serious: Yes (Life-Threatening, Hospitalization)
  Sender: FDA-Public Use
  Company Number: None

PATIENT
  Age: 71 Year
  Sex: Female
  Weight: 62.5 kg

DRUGS (7)
  1. REMICADE [Suspect]
     Indication: COLITIS ULCERATIVE
     Dosage: Q MONTH IV
     Route: 042
  2. REMICADE [Suspect]
     Indication: RHEUMATOID ARTHRITIS
     Dosage: Q MONTH IV
     Route: 042
  3. VANCOMYCIN HCL [Concomitant]
  4. FLAGYL [Concomitant]
  5. CIPRO [Concomitant]
  6. MERREM [Concomitant]
  7. MEROPENEM [Concomitant]

REACTIONS (3)
  - COLITIS ULCERATIVE [None]
  - MENINGITIS BACTERIAL [None]
  - PAIN [None]
